FAERS Safety Report 22095433 (Version 6)
Quarter: 2024Q4

REPORT INFORMATION
  Report Type: Spontaneous
  Country: US (occurrence: US)
  Receive Date: 20230314
  Receipt Date: 20241121
  Transmission Date: 20250115
  Serious: Yes (Other)
  Sender: PFIZER
  Company Number: US-PFIZER INC-PV202300047303

PATIENT
  Age: 74 Year
  Sex: Female

DRUGS (1)
  1. XELJANZ XR [Suspect]
     Active Substance: TOFACITINIB CITRATE
     Dosage: 11 MG, DAILY
     Route: 048

REACTIONS (10)
  - Pain [Unknown]
  - Arthritis [Unknown]
  - Dysstasia [Unknown]
  - Enchondromatosis [Unknown]
  - Shoulder arthroplasty [Unknown]
  - Hypersensitivity [Unknown]
  - Rotator cuff syndrome [Unknown]
  - Movement disorder [Unknown]
  - Arthralgia [Unknown]
  - Mobility decreased [Unknown]

NARRATIVE: CASE EVENT DATE: 20160101
